FAERS Safety Report 5919109-6 (Version None)
Quarter: 2008Q4

REPORT INFORMATION
  Report Type: 
  Country: None (occurrence: None)
  Receive Date: 20081014
  Receipt Date: 20081014
  Transmission Date: 20090506
  Serious: No
  Sender: FDA-Public Use
  Company Number: None

PATIENT
  Age: 30 Year
  Sex: Male
  Weight: 86.1834 kg

DRUGS (3)
  1. ABILIFY [Suspect]
     Indication: SCHIZOPHRENIA
     Dosage: ONE PILL DAILY PO
     Route: 048
     Dates: start: 20061201, end: 20070101
  2. WELLBUTRIN [Concomitant]
  3. ZYPREXA [Concomitant]

REACTIONS (11)
  - COGNITIVE DISORDER [None]
  - DEPRESSION [None]
  - DYSKINESIA [None]
  - FACIAL PAIN [None]
  - FATIGUE [None]
  - NAUSEA [None]
  - PAIN [None]
  - PAIN IN JAW [None]
  - RASH [None]
  - TINNITUS [None]
  - VOMITING [None]
